FAERS Safety Report 4587479-X (Version None)
Quarter: 2005Q1

REPORT INFORMATION
  Report Type: 
  Country: None (occurrence: None)
  Receive Date: 20050215
  Receipt Date: 20050202
  Transmission Date: 20050727
  Serious: Yes (Other)
  Sender: FDA-Public Use
  Company Number: 2005026027

PATIENT
  Age: 17 Year
  Sex: Female
  Weight: 54.4316 kg

DRUGS (1)
  1. BEXTRA [Suspect]
     Indication: DYSMENORRHOEA
     Dosage: 10 MG, AS NECESSARY, ORAL
     Route: 048
     Dates: start: 20040701, end: 20041201

REACTIONS (1)
  - MYOCARDIAL INFARCTION [None]
